FAERS Safety Report 5815374-4 (Version None)
Quarter: 2008Q3

REPORT INFORMATION
  Report Type: 
  Country: None (occurrence: None)
  Receive Date: 20080715
  Receipt Date: 20080701
  Transmission Date: 20090109
  Serious: Yes (Death)
  Sender: FDA-Public Use
  Company Number: PAR_02252_2008

PATIENT
  Age: 20 Month
  Sex: Male

DRUGS (1)
  1. CAPOTEN [Suspect]
     Indication: DRUG USE FOR UNKNOWN INDICATION
     Dosage: (DF)

REACTIONS (2)
  - DRUG DISPENSING ERROR [None]
  - MALAISE [None]
